FAERS Safety Report 7617285-0 (Version None)
Quarter: 2011Q3

REPORT INFORMATION
  Report Type: 
  Country: None (occurrence: None)
  Receive Date: 20110718
  Receipt Date: 20110706
  Transmission Date: 20111222
  Serious: No
  Sender: FDA-Public Use
  Company Number: US-MYLANLABS-2011S1013527

PATIENT
  Age: 53 Year
  Sex: Male

DRUGS (3)
  1. ZOCOR [Concomitant]
     Indication: BLOOD CHOLESTEROL
  2. INDOMETHACIN [Suspect]
     Indication: GOUT
     Route: 048
     Dates: start: 20110618, end: 20110625
  3. INDOMETHACIN [Suspect]
     Indication: ARTHRALGIA
     Route: 048
     Dates: start: 20110618, end: 20110625

REACTIONS (4)
  - RASH [None]
  - OEDEMA PERIPHERAL [None]
  - SKIN DISCOLOURATION [None]
  - RASH ERYTHEMATOUS [None]
